FAERS Safety Report 8047882-2 (Version None)
Quarter: 2012Q1

REPORT INFORMATION
  Report Type: 
  Country: None (occurrence: None)
  Receive Date: 20120116
  Receipt Date: 20120106
  Transmission Date: 20120608
  Serious: Yes (Death)
  Sender: FDA-Public Use
  Company Number: FR-MILLENNIUM PHARMACEUTICALS, INC.-2012-00165

PATIENT

DRUGS (2)
  1. DEXAMETHASONE [Suspect]
     Indication: MULTIPLE MYELOMA
  2. VELCADE [Suspect]
     Indication: MULTIPLE MYELOMA

REACTIONS (1)
  - DEATH [None]
